FAERS Safety Report 4699628-3 (Version None)
Quarter: 2005Q2

REPORT INFORMATION
  Report Type: 
  Country: None (occurrence: None)
  Receive Date: 20050624
  Receipt Date: 20050601
  Transmission Date: 20051028
  Serious: Yes (Other)
  Sender: FDA-Public Use
  Company Number: US-JNJFOC-20050606374

PATIENT
  Sex: Female
  Weight: 47.63 kg

DRUGS (3)
  1. IMODIUM ADVANCED [Suspect]
  2. IMODIUM ADVANCED [Suspect]
  3. ZESTRIL [Concomitant]

REACTIONS (2)
  - BLADDER NEOPLASM [None]
  - URINARY INCONTINENCE [None]
